FAERS Safety Report 8331688-0 (Version None)
Quarter: 2012Q2

REPORT INFORMATION
  Report Type: 
  Country: None (occurrence: None)
  Receive Date: 20120502
  Receipt Date: 20120123
  Transmission Date: 20120825
  Serious: No
  Sender: FDA-Public Use
  Company Number: US-ASTRAZENECA-2011SE79057

PATIENT
  Age: 55 Year
  Sex: Male
  Weight: 63 kg

DRUGS (1)
  1. ENTOCORT EC [Suspect]
     Route: 048

REACTIONS (2)
  - ABDOMINAL PAIN [None]
  - MEDICATION RESIDUE [None]
